FAERS Safety Report 5603062-9 (Version None)
Quarter: 2008Q1

REPORT INFORMATION
  Report Type: 
  Country: None (occurrence: None)
  Receive Date: 20080125
  Receipt Date: 20080114
  Transmission Date: 20080703
  Serious: Yes (Other)
  Sender: FDA-Public Use
  Company Number: US-PFIZER INC-2007081058

PATIENT
  Sex: Female
  Weight: 86.2 kg

DRUGS (12)
  1. CHANTIX [Suspect]
     Indication: SMOKING CESSATION THERAPY
     Route: 048
  2. CHANTIX [Suspect]
     Indication: SMOKER
  3. AMARYL [Concomitant]
  4. LISINOPRIL [Concomitant]
  5. LIPITOR [Concomitant]
  6. METFORMIN HCL [Concomitant]
  7. GABAPENTIN [Concomitant]
  8. PULMICORT [Concomitant]
  9. NEURONTIN [Concomitant]
  10. PREDNISONE TAB [Concomitant]
  11. PEPCID [Concomitant]
  12. ALBUTEROL [Concomitant]

REACTIONS (7)
  - ADJUSTMENT DISORDER [None]
  - EMOTIONAL DISTRESS [None]
  - FEAR [None]
  - INJURY [None]
  - OBSESSIVE-COMPULSIVE DISORDER [None]
  - PANIC ATTACK [None]
  - STRESS [None]
